FAERS Safety Report 7549763-7 (Version None)
Quarter: 2011Q2

REPORT INFORMATION
  Report Type: 
  Country: None (occurrence: None)
  Receive Date: 20110615
  Receipt Date: 20060120
  Transmission Date: 20111010
  Serious: Yes (Hospitalization)
  Sender: FDA-Public Use
  Company Number: PHMT2005CA00537

PATIENT
  Sex: Male

DRUGS (6)
  1. ZOLOFT [Concomitant]
     Dosage: 50 MG QAM, 100 MG QHS
  2. CLOZAPINE [Suspect]
     Dates: start: 20051103
  3. CLOZAPINE [Suspect]
     Indication: SCHIZOPHRENIA
     Dosage: 200 MG, QHS
     Route: 048
     Dates: end: 20051101
  4. VALPROATE SODIUM [Concomitant]
     Dosage: 500 MG QAM, 1000 MG QHS
     Route: 048
  5. METFORMIN HCL [Concomitant]
     Dosage: 50 MG, QD
  6. HALDOL [Concomitant]
     Dosage: 1 MG, QHS

REACTIONS (3)
  - PNEUMONIA [None]
  - PYREXIA [None]
  - TRANSIENT ISCHAEMIC ATTACK [None]
